FAERS Safety Report 6435205-1 (Version None)
Quarter: 2009Q4

REPORT INFORMATION
  Report Type: 
  Country: None (occurrence: None)
  Receive Date: 20091110
  Receipt Date: 20091027
  Transmission Date: 20100525
  Serious: Yes (Death)
  Sender: FDA-Public Use
  Company Number: GB-MYLANLABS-2009S1018697

PATIENT
  Age: 62 Year
  Sex: Female

DRUGS (8)
  1. ETOPOSIDE [Suspect]
     Indication: MALIGNANT HYDATIDIFORM MOLE
     Dosage: 100 MG/M2 ON DAYS 1 AND 2 FOR METASTATIC GESTATIONAL TROPHOBLASTIC NEOPLASIA
  2. ETOPOSIDE [Suspect]
     Dosage: DOSAGE NOT STATED
  3. CISPLATIN [Suspect]
     Indication: MALIGNANT HYDATIDIFORM MOLE
     Dosage: 20 MG/M2 ON DAYS 1 AND 2 FOR METASTATIC GESTATIONAL TROPHOBLASTIC NEOPLASIA
  4. METHOTREXATE [Suspect]
     Indication: MALIGNANT HYDATIDIFORM MOLE
     Dosage: DOSAGE NOT STATED
  5. CYCLOPHOSPHAMIDE [Suspect]
     Indication: MALIGNANT HYDATIDIFORM MOLE
     Dosage: DOSAGE NOT STATED
  6. ONCOVIN [Suspect]
     Indication: MALIGNANT HYDATIDIFORM MOLE
     Dosage: DOSAGE NOT STATED
  7. ACTINOMYCINES [Suspect]
     Indication: MALIGNANT HYDATIDIFORM MOLE
  8. SALBUTAMOL W/BECLOMETASONE [Concomitant]
     Indication: CHRONIC OBSTRUCTIVE PULMONARY DISEASE
     Dosage: DOSAGE NOT STATED
     Route: 055

REACTIONS (2)
  - NEUTROPENIC SEPSIS [None]
  - TOXIC EPIDERMAL NECROLYSIS [None]
